FAERS Safety Report 5417268-5 (Version None)
Quarter: 2007Q3

REPORT INFORMATION
  Report Type: 
  Country: None (occurrence: None)
  Receive Date: 20070718
  Receipt Date: 20060720
  Transmission Date: 20080115
  Serious: Yes (Hospitalization, Other)
  Sender: FDA-Public Use
  Company Number: 2005135479

PATIENT
  Age: 61 Year
  Sex: Male
  Weight: 92.9874 kg

DRUGS (4)
  1. CELEBREX [Suspect]
     Indication: ARTHRITIS
     Dosage: 200 MG (200 MG, 1 IN 1 D)
     Dates: start: 20010402
  2. BEXTRA [Suspect]
     Indication: ARTHRITIS
     Dosage: 20 MG (200 MG, 1 IN 1 D)
     Dates: start: 20020430
  3. ADVIL [Concomitant]
  4. VIOXX [Concomitant]

REACTIONS (1)
  - ANGINA UNSTABLE [None]
